FAERS Safety Report 5481679-2 (Version None)
Quarter: 2007Q3

REPORT INFORMATION
  Report Type: 
  Country: None (occurrence: None)
  Receive Date: 20070913
  Receipt Date: 20061031
  Transmission Date: 20080115
  Serious: Yes (Other)
  Sender: FDA-Public Use
  Company Number: PHEH2006US09674

PATIENT
  Age: 54 Year
  Sex: Female

DRUGS (14)
  1. DIOVAN [Suspect]
     Indication: LABILE HYPERTENSION
     Dosage: 100 MG, QD, ORAL; 320 MG, QD, ORAL
     Route: 048
     Dates: end: 20060726
  2. DIOVAN [Suspect]
     Indication: LABILE HYPERTENSION
     Dosage: 100 MG, QD, ORAL; 320 MG, QD, ORAL
     Route: 048
     Dates: start: 20060727
  3. LOTREL [Suspect]
     Indication: LABILE HYPERTENSION
     Dosage: 10/20 MILLIGRAMS, QD, ORAL; 10/20 MG
     Route: 048
     Dates: start: 20060701
  4. OXYCONTIN [Suspect]
     Dosage: 30 MG, TID
  5. TOPROL-XL [Concomitant]
  6. CLONIDINE [Concomitant]
  7. LORTAB [Concomitant]
  8. PREPARATION H (LIVE YEAST CELL EXTRACT, SHARK-LIVER OIL) [Concomitant]
  9. EFFEXOR [Concomitant]
  10. VALIUM [Concomitant]
  11. PREMARIN /SCH/ (ESTROGENS CONJUGATED, MEDROGESTONE) [Concomitant]
  12. ALBUTEROL [Concomitant]
  13. ADVAIR DISKUS 100/50 [Concomitant]
  14. PHENERGAN [Concomitant]

REACTIONS (2)
  - BLOOD PRESSURE INADEQUATELY CONTROLLED [None]
  - BLOOD PRESSURE SYSTOLIC INCREASED [None]
